FAERS Safety Report 19055955 (Version 1)
Quarter: 2021Q1

REPORT INFORMATION
  Report Type: Spontaneous
  Country: US (occurrence: US)
  Receive Date: 20210324
  Receipt Date: 20210324
  Transmission Date: 20210420
  Serious: Yes (Other)
  Sender: FDA-Public Use
  Company Number: None

PATIENT
  Age: 61 Year
  Sex: Female
  Weight: 63 kg

DRUGS (1)
  1. IC SERTRALINE HCL 100 MG TABLET [Suspect]
     Active Substance: SERTRALINE HYDROCHLORIDE
     Indication: MAJOR DEPRESSION
     Route: 048

REACTIONS (4)
  - Condition aggravated [None]
  - Product substitution issue [None]
  - Depression [None]
  - Product measured potency issue [None]

NARRATIVE: CASE EVENT DATE: 20210316
